FAERS Safety Report 8478728 (Version 3)
Quarter: 2017Q1

REPORT INFORMATION
  Report Type: Report from Study
  Country: US (occurrence: US)
  Receive Date: 20120327
  Receipt Date: 20170127
  Transmission Date: 20170429
  Serious: Yes (Other)
  Sender: FDA-Public Use
  Company Number: US-ROCHE-1040810

PATIENT
  Age: 75 Year
  Sex: Male
  Weight: 92.1 kg

DRUGS (4)
  1. BEVACIZUMAB [Suspect]
     Active Substance: BEVACIZUMAB
     Indication: PROSTATE CANCER
     Dosage: DATE OF LAST DOSE PRIOR TO SAE, 27 DEC 2011
     Route: 042
     Dates: start: 20110706
  2. DOCETAXEL. [Suspect]
     Active Substance: DOCETAXEL
     Indication: PROSTATE CANCER
     Dosage: LAST DOSE PRIOR TO SAE-27/DEC/2011
     Route: 042
     Dates: start: 20110706
  3. PREDNISONE. [Suspect]
     Active Substance: PREDNISONE
     Indication: PROSTATE CANCER
     Dosage: LAST DOSE PRIOR TO SAE-27/DEC/2011
     Route: 048
     Dates: start: 20110706, end: 20111227
  4. LENALIDOMIDE [Suspect]
     Active Substance: LENALIDOMIDE
     Indication: PROSTATE CANCER
     Dosage: ON DAYS1-14, LAST DOSE PRIOR TO SAE-04/JAN/2011
     Route: 048
     Dates: start: 20110706

REACTIONS (7)
  - Atrial fibrillation [Recovered/Resolved]
  - Transient ischaemic attack [Recovered/Resolved]
  - Muscular weakness [Unknown]
  - Urinary tract obstruction [Unknown]
  - Anaemia [Unknown]
  - Peripheral sensory neuropathy [Unknown]
  - Urinary retention [Unknown]

NARRATIVE: CASE EVENT DATE: 20120104
